FAERS Safety Report 5097808-9 (Version None)
Quarter: 2006Q3

REPORT INFORMATION
  Report Type: 
  Country: None (occurrence: None)
  Receive Date: 20060731
  Receipt Date: 20060228
  Transmission Date: 20061208
  Serious: Yes (Life-Threatening, Hospitalization, Disabling)
  Sender: FDA-Public Use
  Company Number: 222300

PATIENT
  Age: 61 Year
  Sex: Female

DRUGS (6)
  1. HERCEPTIN [Suspect]
     Indication: BREAST CANCER
     Dosage: 360 MG, Q3W, INTRAVENOUS
     Route: 042
     Dates: start: 20050830, end: 20051120
  2. CYCLOPHOSPHAMIDE [Concomitant]
  3. METHOTREXATE [Concomitant]
  4. FLUOROURACIL [Concomitant]
  5. LETROZOLE [Concomitant]
  6. RADIATION THERAPY [Concomitant]

REACTIONS (1)
  - PNEUMONIA [None]
